FAERS Safety Report 4520308-9 (Version None)
Quarter: 2004Q4

REPORT INFORMATION
  Report Type: 
  Country: None (occurrence: None)
  Receive Date: 20041203
  Receipt Date: 20041117
  Transmission Date: 20050328
  Serious: Yes (Life-Threatening)
  Sender: FDA-Public Use
  Company Number: DSA_25441_2004

PATIENT
  Age: 48 Year
  Sex: Female
  Weight: 64.8 kg

DRUGS (11)
  1. ATIVAN [Suspect]
     Dosage: DF ONCE PO
     Route: 048
     Dates: start: 20041107, end: 20041107
  2. FLUNITRAZEPAM [Suspect]
     Dosage: 80 TAB ONCE PO
     Route: 048
     Dates: start: 20041107, end: 20041107
  3. ATIVAN [Suspect]
     Indication: ANXIETY
     Dosage: 3 MG Q DAY PO
     Route: 048
     Dates: start: 20041025, end: 20041106
  4. FLUNITRAZEPAM [Suspect]
     Dosage: 4 MG Q DAY
     Dates: start: 20041025, end: 20041107
  5. EFFEXOR XR [Suspect]
     Indication: DEPRESSION
     Dosage: 75 MG TID PO
     Route: 048
     Dates: start: 20040924, end: 20041107
  6. EFFEXOR XR [Suspect]
     Indication: DEPRESSION
     Dosage: 75 MG BID PO
     Route: 048
     Dates: start: 20040910, end: 20040923
  7. EFFEXOR XR [Suspect]
     Indication: DEPRESSION
     Dosage: 75 MG Q DAY PO
     Route: 048
     Dates: start: 20040806, end: 20040909
  8. EFFEXOR XR [Suspect]
     Indication: DEPRESSION
     Dosage: 75 MG TID PO
     Route: 048
     Dates: start: 20041109
  9. INDERAL [Concomitant]
  10. MAGNESIUM OXIDE [Concomitant]
  11. RIVOTRIL [Concomitant]

REACTIONS (4)
  - IRRITABILITY [None]
  - MEAN CELL HAEMOGLOBIN CONCENTRATION DECREASED [None]
  - MULTIPLE DRUG OVERDOSE INTENTIONAL [None]
  - SUICIDE ATTEMPT [None]
